FAERS Safety Report 23077526 (Version 1)
Quarter: 2023Q4

REPORT INFORMATION
  Report Type: Report from Study
  Country: GB (occurrence: GB)
  Receive Date: 20231018
  Receipt Date: 20231018
  Transmission Date: 20240110
  Serious: Yes (Hospitalization, Other)
  Sender: FDA-Public Use
  Company Number: GB-002147023-NVSC2023GB117382

PATIENT
  Age: 33 Year
  Sex: Female

DRUGS (2)
  1. KESIMPTA [Suspect]
     Active Substance: OFATUMUMAB
     Indication: Multiple sclerosis
     Dosage: 20 MG, QW
     Route: 058
     Dates: start: 20230515
  2. KESIMPTA [Suspect]
     Active Substance: OFATUMUMAB
     Indication: Relapsing-remitting multiple sclerosis
     Dosage: 20 MG, QMO
     Route: 058
     Dates: start: 20230522

REACTIONS (16)
  - Back pain [Recovering/Resolving]
  - Abdominal pain [Recovering/Resolving]
  - Multiple sclerosis relapse [Not Recovered/Not Resolved]
  - Hemihypoaesthesia [Unknown]
  - Feeling abnormal [Unknown]
  - Mobility decreased [Not Recovered/Not Resolved]
  - Gait disturbance [Not Recovered/Not Resolved]
  - Feeling hot [Unknown]
  - Hyperhidrosis [Unknown]
  - Nephrolithiasis [Recovering/Resolving]
  - Diverticulitis [Recovering/Resolving]
  - Influenza like illness [Recovering/Resolving]
  - Thirst [Unknown]
  - Taste disorder [Unknown]
  - Paraesthesia [Unknown]
  - Ovarian cyst [Recovering/Resolving]

NARRATIVE: CASE EVENT DATE: 20231008
